FAERS Safety Report 15753376 (Version 1)
Quarter: 2018Q4

REPORT INFORMATION
  Report Type: Spontaneous
  Country: US (occurrence: US)
  Receive Date: 20181222
  Receipt Date: 20181222
  Transmission Date: 20190205
  Serious: No
  Sender: FDA-Public Use
  Company Number: US-MALLINCKRODT-T201704841

PATIENT
  Sex: Female
  Weight: 104 kg

DRUGS (1)
  1. FENTANYL TRANSDERMAL SYSTEM [Suspect]
     Active Substance: FENTANYL
     Indication: PAIN
     Dosage: 75 MCG/HR, 72 HOURS
     Route: 062

REACTIONS (7)
  - Dermatitis contact [Unknown]
  - Hyperhidrosis [Unknown]
  - Pruritus [Unknown]
  - Erythema [Unknown]
  - Drug effect incomplete [Unknown]
  - Drug ineffective [Unknown]
  - Product adhesion issue [Unknown]
